FAERS Safety Report 20877710 (Version 1)
Quarter: 2022Q2

REPORT INFORMATION
  Report Type: Spontaneous
  Country: CA (occurrence: CA)
  Receive Date: 20220526
  Receipt Date: 20220526
  Transmission Date: 20220721
  Serious: Yes (Hospitalization)
  Sender: FDA-Public Use
  Company Number: CA-NAPPMUNDI-GBR-2022-0098274

PATIENT
  Age: 86 Year
  Sex: Male

DRUGS (1)
  1. OXYCODONE [Suspect]
     Active Substance: OXYCODONE
     Indication: Arthritis
     Dosage: UNKNOWN
     Route: 065

REACTIONS (3)
  - Asthenia [Unknown]
  - Fall [Unknown]
  - Product substitution error [Unknown]
